APPROVED DRUG PRODUCT: OVCON-50
Active Ingredient: ETHINYL ESTRADIOL; NORETHINDRONE
Strength: 0.05MG;1MG **Federal Register determination that product was not discontinued or withdrawn for safety or effectiveness reasons**
Dosage Form/Route: TABLET;ORAL-28
Application: N017576 | Product #001
Applicant: WARNER CHILCOTT CO LLC
Approved: Approved Prior to Jan 1, 1982 | RLD: No | RS: No | Type: DISCN